FAERS Safety Report 12467279 (Version 3)
Quarter: 2017Q4

REPORT INFORMATION
  Report Type: Spontaneous
  Country: US (occurrence: US)
  Receive Date: 20160615
  Receipt Date: 20171214
  Transmission Date: 20180320
  Serious: No
  Sender: FDA-Public Use
  Company Number: US-PFIZER INC-2016272196

PATIENT
  Age: 48 Year
  Sex: Female
  Weight: 127 kg

DRUGS (15)
  1. HYDROCHLOROTHIAZIDE. [Concomitant]
     Active Substance: HYDROCHLOROTHIAZIDE
     Dosage: 40 MG/12.5 MG; 1 -1 DAY AM
     Dates: start: 20160910
  2. SYMBICORT [Concomitant]
     Active Substance: BUDESONIDE\FORMOTEROL FUMARATE DIHYDRATE
     Dosage: 160/4.5 2 PUFFS, 2X/DAY
     Dates: start: 201507
  3. LYRICA [Suspect]
     Active Substance: PREGABALIN
     Indication: PAIN IN EXTREMITY
  4. LYRICA [Suspect]
     Active Substance: PREGABALIN
     Indication: NECK PAIN
  5. LOVAZA [Concomitant]
     Active Substance: OMEGA-3-ACID ETHYL ESTERS
     Dosage: 1 G, 2X - 2 DAY
     Dates: start: 20160715
  6. TELMISARTAN. [Concomitant]
     Active Substance: TELMISARTAN
     Dosage: 1 G, 2X - 2 DAY
     Dates: start: 20160715
  7. ACETYLSALICYLIC ACID [Concomitant]
     Active Substance: ASPIRIN
     Dosage: LOW DOSE,1-1 DAY
     Dates: start: 20160715
  8. CRESTOR [Concomitant]
     Active Substance: ROSUVASTATIN CALCIUM
     Dosage: 20 MG, 1-1 DAY
     Dates: start: 20160715
  9. METFORMIN [Concomitant]
     Active Substance: METFORMIN HYDROCHLORIDE
     Dosage: 15MG/500MG, 1-2 X DAILY
     Dates: start: 20160601
  10. BYSTOLIC [Concomitant]
     Active Substance: NEBIVOLOL HYDROCHLORIDE
     Dosage: 10 MG, 1-1 DAY
     Dates: start: 20160601
  11. LYRICA [Suspect]
     Active Substance: PREGABALIN
     Indication: BACK PAIN
     Dosage: 150 MG, 2X/DAY
     Dates: start: 201406
  12. CHANTIX [Concomitant]
     Active Substance: VARENICLINE TARTRATE
     Dosage: 1 MG, 1-1 DAY
     Dates: start: 20160715
  13. VENTOLIN HFA [Concomitant]
     Active Substance: ALBUTEROL SULFATE
     Dosage: 2 PUFFS/6 HR , AS NEEDED
     Dates: start: 201507
  14. LYRICA [Suspect]
     Active Substance: PREGABALIN
     Indication: MUSCULOSKELETAL PAIN
     Dosage: 150 MG, 2X/DAY
     Route: 048
     Dates: start: 2013, end: 201602
  15. EFFEXOR [Concomitant]
     Active Substance: VENLAFAXINE HYDROCHLORIDE
     Dosage: 150 MG, 1-1 DAY
     Dates: start: 20160715

REACTIONS (10)
  - Stress [Recovering/Resolving]
  - Neck pain [Not Recovered/Not Resolved]
  - Pain in extremity [Not Recovered/Not Resolved]
  - Arthralgia [Unknown]
  - Back pain [Not Recovered/Not Resolved]
  - Condition aggravated [Not Recovered/Not Resolved]
  - Hypoaesthesia [Not Recovered/Not Resolved]
  - Musculoskeletal pain [Not Recovered/Not Resolved]
  - Insomnia [Recovering/Resolving]
  - Carpal tunnel syndrome [Unknown]

NARRATIVE: CASE EVENT DATE: 2016
